FAERS Safety Report 11091302 (Version 2)
Quarter: 2015Q2

REPORT INFORMATION
  Report Type: Spontaneous
  Country: MX (occurrence: MX)
  Receive Date: 20150505
  Receipt Date: 20150512
  Transmission Date: 20150821
  Serious: Yes (Hospitalization, Other)
  Sender: FDA-Public Use
  Company Number: MX-GLAXOSMITHKLINE-MX2015GSK059218

PATIENT
  Age: 54 Year
  Sex: Female

DRUGS (2)
  1. OXALIPLATIN. [Concomitant]
     Active Substance: OXALIPLATIN
     Indication: PRODUCT USED FOR UNKNOWN INDICATION
  2. ZOFRAN [Suspect]
     Active Substance: ONDANSETRON HYDROCHLORIDE
     Indication: COLON CANCER
     Dosage: UNK
     Dates: start: 20150325

REACTIONS (4)
  - Transmission of an infectious agent via product [Recovered/Resolved]
  - Product quality issue [Unknown]
  - Bacteraemia [Recovered/Resolved]
  - Burkholderia cepacia complex infection [Recovered/Resolved]

NARRATIVE: CASE EVENT DATE: 20150326
